FAERS Safety Report 13067752 (Version 2)
Quarter: 2018Q4

REPORT INFORMATION
  Report Type: Spontaneous
  Country: DE (occurrence: DE)
  Receive Date: 20161228
  Receipt Date: 20181219
  Transmission Date: 20190204
  Serious: Yes (Other)
  Sender: FDA-Public Use
  Company Number: DE-ACCORD-046799

PATIENT
  Age: 44 Year
  Sex: Male

DRUGS (3)
  1. BLEOMYCIN [Concomitant]
     Active Substance: BLEOMYCIN SULFATE
     Indication: SEMINOMA
  2. CISPLATIN. [Suspect]
     Active Substance: CISPLATIN
     Indication: SEMINOMA
     Dosage: RECEIVED 2 CYCLES
  3. ETOPOSIDE/ETOPOSIDE PHOSPHATE [Concomitant]
     Indication: SEMINOMA
     Route: 042
     Dates: start: 20110929, end: 20141126

REACTIONS (1)
  - Cerebral infarction [Recovered/Resolved]
